FAERS Safety Report 19181349 (Version 1)
Quarter: 2021Q2

REPORT INFORMATION
  Report Type: Spontaneous
  Country: CO (occurrence: CO)
  Receive Date: 20210426
  Receipt Date: 20210426
  Transmission Date: 20210717
  Serious: Yes (Other)
  Sender: FDA-Public Use
  Company Number: CO-FRESENIUS KABI-FK202104203

PATIENT
  Age: 78 Year
  Sex: Female

DRUGS (1)
  1. OXACILLIN FOR INJECTION (MANUFACTURER UNKNOWN) [Suspect]
     Active Substance: OXACILLIN SODIUM
     Indication: STAPHYLOCOCCAL BACTERAEMIA
     Route: 042

REACTIONS (1)
  - Cutaneous vasculitis [Recovered/Resolved]
